FAERS Safety Report 6040689-7 (Version None)
Quarter: 2009Q1

REPORT INFORMATION
  Report Type: 
  Country: None (occurrence: None)
  Receive Date: 20090116
  Receipt Date: 20080506
  Transmission Date: 20090719
  Serious: No
  Sender: FDA-Public Use
  Company Number: US-BRISTOL-MYERS SQUIBB COMPANY-14177786

PATIENT
  Age: 37 Year
  Sex: Female
  Weight: 78 kg

DRUGS (3)
  1. ARIPIPRAZOLE [Suspect]
     Indication: BIPOLAR DISORDER
     Dosage: 08-JUN-2006 TO 08-MAY-2007 (5MG IN AM) RESTARTED ON 29-MAY-2007 - CONT (2.5MG AT BEDTIME)
     Route: 048
     Dates: start: 20060608
  2. DEPAKOTE ER [Suspect]
     Indication: BIPOLAR DISORDER
     Dosage: TABLET FORM
     Route: 048
     Dates: start: 20060701, end: 20070529
  3. VALPROIC ACID [Concomitant]
     Indication: BIPOLAR DISORDER
     Dosage: 250MG AT BEDTIME
     Route: 048
     Dates: start: 20070529

REACTIONS (2)
  - DEPRESSED MOOD [None]
  - MEDICATION RESIDUE [None]
